FAERS Safety Report 14337832 (Version 1)
Quarter: 2017Q4

REPORT INFORMATION
  Report Type: Report from Study
  Country: FR (occurrence: FR)
  Receive Date: 20171229
  Receipt Date: 20171229
  Transmission Date: 20180321
  Serious: Yes (Death)
  Sender: FDA-Public Use
  Company Number: FR-PFIZER INC-2017550854

PATIENT

DRUGS (1)
  1. DINOPROSTONE. [Suspect]
     Active Substance: DINOPROSTONE
     Route: 065

REACTIONS (1)
  - Foetal death [Fatal]
